FAERS Safety Report 5981377-2 (Version None)
Quarter: 2008Q4

REPORT INFORMATION
  Report Type: 
  Country: None (occurrence: None)
  Receive Date: 20081126
  Receipt Date: 20081111
  Transmission Date: 20090506
  Serious: Yes (Hospitalization)
  Sender: FDA-Public Use
  Company Number: IDA-00156

PATIENT

DRUGS (1)
  1. INDERAL [Suspect]
     Indication: CONGESTIVE CARDIOMYOPATHY
     Dosage: 10 MG BID
     Route: 064
     Dates: start: 20071205

REACTIONS (3)
  - DRUG EXPOSURE DURING PREGNANCY [None]
  - NEONATAL RESPIRATORY DISTRESS SYNDROME [None]
  - PREMATURE BABY [None]
